FAERS Safety Report 8391435-3 (Version None)
Quarter: 2012Q2

REPORT INFORMATION
  Report Type: 
  Country: None (occurrence: None)
  Receive Date: 20120523
  Receipt Date: 20120511
  Transmission Date: 20120825
  Serious: Yes (Other)
  Sender: FDA-Public Use
  Company Number: 2012SP025507

PATIENT
  Sex: Female

DRUGS (2)
  1. RIBAVIRIN [Suspect]
     Indication: HEPATITIS C
     Dates: start: 20120507
  2. PEG-INTRON [Suspect]
     Indication: HEPATITIS C
     Dates: start: 20120507

REACTIONS (3)
  - FAECES DISCOLOURED [None]
  - ABDOMINAL PAIN [None]
  - RECTAL HAEMORRHAGE [None]
